FAERS Safety Report 15516616 (Version 1)
Quarter: 2018Q4

REPORT INFORMATION
  Report Type: Report from Study
  Country: CA (occurrence: CA)
  Receive Date: 20181017
  Receipt Date: 20181017
  Transmission Date: 20190205
  Serious: No
  Sender: FDA-Public Use
  Company Number: CA-ROCHE-2200386

PATIENT
  Age: 38 Year
  Sex: Female

DRUGS (1)
  1. OCREVUS [Suspect]
     Active Substance: OCRELIZUMAB
     Indication: RELAPSING-REMITTING MULTIPLE SCLEROSIS
     Dosage: 300 MG AT DAY 0 AND 14THEN 600 MG EVERY 6 MONTH ONGOINGYES
     Route: 042
     Dates: start: 20181002

REACTIONS (4)
  - Nasal congestion [Recovered/Resolved]
  - Nasopharyngitis [Recovered/Resolved]
  - Throat irritation [Recovered/Resolved]
  - Cough [Recovered/Resolved]

NARRATIVE: CASE EVENT DATE: 20181002
